FAERS Safety Report 13877949 (Version 2)
Quarter: 2017Q3

REPORT INFORMATION
  Report Type: Spontaneous
  Country: US (occurrence: US)
  Receive Date: 20170817
  Receipt Date: 20170831
  Transmission Date: 20171127
  Serious: Yes (Other)
  Sender: FDA-Public Use
  Company Number: US-TEVA-797132ACC

PATIENT
  Age: 48 Year
  Sex: Female
  Weight: 66.74 kg

DRUGS (1)
  1. PARAGARD T 380A [Suspect]
     Active Substance: COPPER
     Indication: CONTRACEPTION
     Route: 065
     Dates: start: 20170112

REACTIONS (1)
  - Smear cervix abnormal [Recovering/Resolving]

NARRATIVE: CASE EVENT DATE: 20170707
